FAERS Safety Report 6568752-2 (Version None)
Quarter: 2010Q1

REPORT INFORMATION
  Report Type: 
  Country: None (occurrence: None)
  Receive Date: 20100203
  Receipt Date: 20100127
  Transmission Date: 20100710
  Serious: Yes (Death)
  Sender: FDA-Public Use
  Company Number: GXKR2010ES01246

PATIENT
  Age: 33 Year
  Sex: Female

DRUGS (11)
  1. METHOTREXATE [Suspect]
     Indication: DERMATOMYOSITIS
     Dosage: 10 MG/WEEK
     Route: 065
  2. METHOTREXATE [Suspect]
     Dosage: TAPERED TO 2.5 MG/WEEK OVER 6 MONTHS
     Route: 065
  3. METHOTREXATE [Suspect]
     Dosage: 7.5 MG/DAY
     Route: 065
  4. METHOTREXATE [Suspect]
     Dosage: 7.5 MG/WEEK
     Dates: start: 20060501
  5. AZATHIOPRINE SODIUM [Suspect]
     Indication: DERMATOMYOSITIS
     Dosage: 150 MG/DAY
     Route: 065
  6. AZATHIOPRINE SODIUM [Suspect]
     Dosage: TAPERED TO 25 MG/DAY OVER 6 MONTHS
     Route: 065
  7. AZATHIOPRINE SODIUM [Suspect]
     Dosage: 100 MG/DAY
     Route: 065
  8. AZATHIOPRINE SODIUM [Suspect]
     Dosage: 75 MG/DAY
     Route: 065
     Dates: start: 20060501
  9. PREDNISONE TAB [Suspect]
     Indication: DERMATOMYOSITIS
     Dosage: 1MG/KG/DAY AND MORE
     Route: 065
  10. CORTICOSTEROIDS [Suspect]
     Indication: DERMATOMYOSITIS
     Dosage: 5 MG/DAY
     Route: 065
  11. IMMU-G [Concomitant]
     Dosage: 0.4 G/KG/DAY
     Route: 042

REACTIONS (9)
  - B-CELL LYMPHOMA [None]
  - CHOLESTASIS [None]
  - EPSTEIN-BARR VIRUS INFECTION [None]
  - HEPATIC ENZYME INCREASED [None]
  - MULTI-ORGAN FAILURE [None]
  - NORMOCHROMIC NORMOCYTIC ANAEMIA [None]
  - PYREXIA [None]
  - SPLENOMEGALY [None]
  - TUMOUR LYSIS SYNDROME [None]
